FAERS Safety Report 6404981-6 (Version None)
Quarter: 2009Q4

REPORT INFORMATION
  Report Type: 
  Country: None (occurrence: None)
  Receive Date: 20091013
  Receipt Date: 20090925
  Transmission Date: 20100525
  Serious: Yes (Life-Threatening, Hospitalization)
  Sender: FDA-Public Use
  Company Number: AUR-APL-2009-00735

PATIENT
  Age: 25 Year
  Sex: Female

DRUGS (3)
  1. AMLODIPINE [Suspect]
     Dosage: 100MG - X1 - ORAL
     Route: 048
  2. DICLOFENAC SUSTAINED RELEASE TABLET [Suspect]
     Dosage: ^A FEW TABLETS^ - ORAL
     Route: 048
  3. SALBUTAMOL INHALATION [Concomitant]

REACTIONS (11)
  - ABDOMINAL TENDERNESS [None]
  - COLD SWEAT [None]
  - FEELING COLD [None]
  - GENERAL PHYSICAL HEALTH DETERIORATION [None]
  - HAEMODYNAMIC INSTABILITY [None]
  - HYPOTENSION [None]
  - OVERDOSE [None]
  - PALLOR [None]
  - PULMONARY OEDEMA [None]
  - SOMNOLENCE [None]
  - VOMITING [None]
